FAERS Safety Report 6956991-8 (Version None)
Quarter: 2010Q3

REPORT INFORMATION
  Report Type: 
  Country: None (occurrence: None)
  Receive Date: 20100827
  Receipt Date: 20100827
  Transmission Date: 20110219
  Serious: Yes (Other)
  Sender: FDA-Public Use
  Company Number: None

PATIENT
  Age: 26 Year
  Sex: Female
  Weight: 77.5651 kg

DRUGS (1)
  1. NUVARING [Suspect]
     Indication: CONTRACEPTION
     Dosage: .120 ESTONOGESTERAL DAILY VAG .015 ETHINYL DAILY VAG
     Route: 067
     Dates: start: 20090607, end: 20100824

REACTIONS (8)
  - AGGRESSION [None]
  - AMNESIA [None]
  - ANGER [None]
  - CRYING [None]
  - HEADACHE [None]
  - MOOD SWINGS [None]
  - NO THERAPEUTIC RESPONSE [None]
  - SUICIDAL IDEATION [None]
